FAERS Safety Report 17024261 (Version 1)
Quarter: 2019Q4

REPORT INFORMATION
  Report Type: Spontaneous
  Country: US (occurrence: US)
  Receive Date: 20191113
  Receipt Date: 20191113
  Transmission Date: 20200122
  Serious: Yes (Hospitalization, Other)
  Sender: FDA-Public Use
  Company Number: US-VISTAPHARM, INC.-VER201911-001239

PATIENT
  Age: 90 Year
  Sex: Female

DRUGS (1)
  1. ALBUTEROL. [Suspect]
     Active Substance: ALBUTEROL
     Indication: HYPOXIA
     Dosage: UNKNOWN

REACTIONS (2)
  - Lactic acidosis [Unknown]
  - Condition aggravated [Unknown]
